FAERS Safety Report 8164573-8 (Version None)
Quarter: 2012Q1

REPORT INFORMATION
  Report Type: 
  Country: None (occurrence: None)
  Receive Date: 20120226
  Receipt Date: 20120222
  Transmission Date: 20120608
  Serious: Yes (Hospitalization)
  Sender: FDA-Public Use
  Company Number: US-VERTEX PHARMACEUTICALS INC.-AE-2012-002515

PATIENT
  Sex: Female

DRUGS (14)
  1. ELAVIL [Concomitant]
  2. COMBIVENT [Concomitant]
  3. INCIVEK [Suspect]
     Indication: HEPATITIS C
     Route: 048
     Dates: start: 20120131, end: 20120213
  4. RIBASPHERE [Concomitant]
     Indication: HEPATITIS C
     Route: 048
     Dates: start: 20120131, end: 20120213
  5. CELEBREX [Concomitant]
  6. PERCOCET [Concomitant]
  7. FUROSEMIDE [Concomitant]
  8. RISPERDAL [Concomitant]
  9. NEURONTIN [Concomitant]
  10. PEGASYS [Concomitant]
     Indication: HEPATITIS C
     Route: 058
     Dates: start: 20120131, end: 20120207
  11. VALIUM [Concomitant]
  12. SYMBICORT [Concomitant]
  13. ALBUTEROL [Concomitant]
  14. LYRICA [Concomitant]

REACTIONS (5)
  - INTESTINAL RESECTION [None]
  - CANDIDIASIS [None]
  - MALAISE [None]
  - HAEMORRHOIDS [None]
  - PROCTALGIA [None]
